FAERS Safety Report 4607396-6 (Version None)
Quarter: 2005Q1

REPORT INFORMATION
  Report Type: 
  Country: None (occurrence: None)
  Receive Date: 20050310
  Receipt Date: 20050302
  Transmission Date: 20050727
  Serious: Yes (Life-Threatening)
  Sender: FDA-Public Use
  Company Number: 2005PK00361

PATIENT
  Age: 55 Year
  Sex: Male

DRUGS (5)
  1. SEROQUEL [Suspect]
     Dosage: 200 MG DAILY PO
     Route: 048
     Dates: start: 20010206, end: 20010209
  2. OMEPRAZOLE [Suspect]
     Dosage: 20 MG DAILY PO
     Route: 048
     Dates: start: 20010102, end: 20010209
  3. AMITRIPTYLINE HYDROCHLORIDE [Suspect]
     Dosage: 150 MG DAILY PO
     Route: 048
     Dates: start: 20010129, end: 20010209
  4. TAVOR [Suspect]
     Dosage: 3 MG DAILY PO
     Route: 048
     Dates: start: 20010102, end: 20010209
  5. ZOLPIDEM TARTRATE [Suspect]
     Dosage: 1 DF DAILY PO
     Route: 048
     Dates: start: 20010102, end: 20010209

REACTIONS (7)
  - ANGINA PECTORIS [None]
  - CARDIAC ARREST [None]
  - CIRCULATORY COLLAPSE [None]
  - DRUG INTERACTION [None]
  - RESPIRATORY ARREST [None]
  - VENTRICULAR FIBRILLATION [None]
  - VENTRICULAR FLUTTER [None]
